FAERS Safety Report 15899971 (Version 1)
Quarter: 2019Q1

REPORT INFORMATION
  Report Type: Spontaneous
  Country: JP (occurrence: JP)
  Receive Date: 20190201
  Receipt Date: 20190201
  Transmission Date: 20190417
  Serious: Yes (Death, Other)
  Sender: FDA-Public Use
  Company Number: JP-ROCHE-2254319

PATIENT
  Age: 75 Year
  Sex: Male

DRUGS (2)
  1. EDARAVONE [Concomitant]
     Active Substance: EDARAVONE
  2. ACTILYSE [Suspect]
     Active Substance: ALTEPLASE
     Indication: ISCHAEMIC STROKE
     Route: 042

REACTIONS (2)
  - Cerebral infarction [Fatal]
  - Coma [Unknown]
